FAERS Safety Report 14326031 (Version 10)
Quarter: 2018Q4

REPORT INFORMATION
  Report Type: Report from Study
  Country: US (occurrence: US)
  Receive Date: 20171226
  Receipt Date: 20181008
  Transmission Date: 20190204
  Serious: Yes (Hospitalization)
  Sender: FDA-Public Use
  Company Number: US-ACTELION-A-US2017-164745

PATIENT
  Age: 62 Year
  Sex: Female
  Weight: 72.11 kg

DRUGS (6)
  1. SILDENAFIL. [Concomitant]
     Active Substance: SILDENAFIL
  2. ADEMPAS [Suspect]
     Active Substance: RIOCIGUAT
     Indication: PRODUCT USED FOR UNKNOWN INDICATION
     Dosage: 1.5 MG, UNK
     Route: 065
  3. EPOPROSTENOL TEVA [Concomitant]
  4. REMODULIN [Concomitant]
     Active Substance: TREPROSTINIL
     Route: 058
  5. REMODULIN [Concomitant]
     Active Substance: TREPROSTINIL
     Dosage: UNK
     Route: 042
  6. OPSUMIT [Suspect]
     Active Substance: MACITENTAN
     Indication: PULMONARY ARTERIAL HYPERTENSION
     Dosage: 10 MG, QD
     Route: 048

REACTIONS (24)
  - Infusion site infection [Unknown]
  - Catheter site discharge [Unknown]
  - Pyrexia [Unknown]
  - Skin weeping [Unknown]
  - Catheter placement [Unknown]
  - Catheter site related reaction [Unknown]
  - Catheter site pruritus [Unknown]
  - Dyspepsia [Unknown]
  - Diverticulitis [Unknown]
  - Dyspnoea [Not Recovered/Not Resolved]
  - Malaise [Unknown]
  - Catheter site rash [Unknown]
  - Diarrhoea [Unknown]
  - Head discomfort [Unknown]
  - Hypersensitivity [Unknown]
  - Infusion site cellulitis [Unknown]
  - Catheter site pain [Unknown]
  - Catheter site erythema [Unknown]
  - Headache [Unknown]
  - Gastrooesophageal reflux disease [Not Recovered/Not Resolved]
  - Catheter site erosion [Unknown]
  - Ear infection [Unknown]
  - Chills [Unknown]
  - Condition aggravated [Not Recovered/Not Resolved]

NARRATIVE: CASE EVENT DATE: 20180924
